FAERS Safety Report 22326698 (Version 2)
Quarter: 2024Q2

REPORT INFORMATION
  Report Type: Spontaneous
  Country: US (occurrence: US)
  Receive Date: 20230516
  Receipt Date: 20240531
  Transmission Date: 20240716
  Serious: No
  Sender: FDA-Public Use
  Company Number: US-RADIUS HEALTH INC.-2022US004733

PATIENT
  Sex: Female

DRUGS (4)
  1. TYMLOS [Suspect]
     Active Substance: ABALOPARATIDE
     Indication: Osteopenia
     Dosage: 80 MICROGRAM, QD
     Route: 058
     Dates: start: 2022
  2. CALCIUM [Concomitant]
     Active Substance: CALCIUM
     Indication: Supplementation therapy
     Dosage: 600 MILLIGRAM, QD
  3. SIMVASTATIN [Concomitant]
     Active Substance: SIMVASTATIN
     Indication: Product used for unknown indication
  4. METOPROLOL [Concomitant]
     Active Substance: METOPROLOL
     Indication: Product used for unknown indication

REACTIONS (7)
  - Myalgia [Recovered/Resolved]
  - Tooth fracture [Not Recovered/Not Resolved]
  - Heart rate increased [Recovered/Resolved]
  - Bone pain [Recovered/Resolved]
  - Palpitations [Recovered/Resolved]
  - Blood calcium increased [Recovered/Resolved]
  - Product use in unapproved indication [Not Recovered/Not Resolved]

NARRATIVE: CASE EVENT DATE: 20230101
